FAERS Safety Report 11350238 (Version 1)
Quarter: 2015Q3

REPORT INFORMATION
  Report Type: Spontaneous
  Country: US (occurrence: None)
  Receive Date: 20150805
  Receipt Date: 20150805
  Transmission Date: 20151125
  Serious: Yes (Life-Threatening, Hospitalization)
  Sender: FDA-Public Use
  Company Number: None

PATIENT
  Age: 82 Year
  Sex: Female
  Weight: 104 kg

DRUGS (15)
  1. FLUTICASONE (FLONASE) [Concomitant]
  2. ASPIRIN. [Concomitant]
     Active Substance: ASPIRIN
  3. CHOLECALCIFEROL (VITAMIN D3) [Concomitant]
  4. SYNTHROID [Concomitant]
     Active Substance: LEVOTHYROXINE SODIUM
  5. RANITIDINE (ZANTAC) [Concomitant]
  6. SAXAGLIPTIN HCL [Concomitant]
  7. ENOXAPARIN 100 MG [Suspect]
     Active Substance: ENOXAPARIN
     Indication: DEEP VEIN THROMBOSIS
     Route: 058
  8. LIPITOR [Concomitant]
     Active Substance: ATORVASTATIN CALCIUM
  9. DOCUSATE SODIUM (COLACE) [Concomitant]
  10. GABAPENTIN (NEURONTIN) [Concomitant]
  11. AMLODIPINE (NORVASC) [Concomitant]
  12. CLOPIDOGREL(PLAVIX) [Concomitant]
  13. CYANOCOBALAMIN (VITAMIN B 12 PO) [Concomitant]
  14. MIRALAX [Concomitant]
     Active Substance: POLYETHYLENE GLYCOL 3350
  15. RAMIPRIL (ALTACE) [Concomitant]

REACTIONS (5)
  - Abdominal pain [None]
  - Injection site pain [None]
  - Haematoma [None]
  - Haemoglobin decreased [None]
  - Pulmonary mass [None]

NARRATIVE: CASE EVENT DATE: 20150804
